FAERS Safety Report 23995819 (Version 1)
Quarter: 2024Q2

REPORT INFORMATION
  Report Type: Spontaneous
  Country: US (occurrence: None)
  Receive Date: 20240619
  Receipt Date: 20240619
  Transmission Date: 20240716
  Serious: Yes (Other)
  Sender: FDA-Public Use
  Company Number: None

PATIENT
  Sex: Female

DRUGS (2)
  1. SPRAVATO [Suspect]
     Active Substance: ESKETAMINE
     Indication: Major depression
     Dosage: FREQUENCY : TWICE A WEEK;?
     Route: 045
     Dates: start: 20231219
  2. VYVANSE CHW [Concomitant]

REACTIONS (2)
  - Abortion spontaneous [None]
  - Therapy interrupted [None]
